FAERS Safety Report 17426668 (Version 2)
Quarter: 2020Q1

REPORT INFORMATION
  Report Type: Report from Study
  Country: US (occurrence: US)
  Receive Date: 20200218
  Receipt Date: 20200226
  Transmission Date: 20200409
  Serious: No
  Sender: FDA-Public Use
  Company Number: NVSC2020US043580

PATIENT
  Sex: Female

DRUGS (1)
  1. GILENYA [Suspect]
     Active Substance: FINGOLIMOD HYDROCHLORIDE
     Indication: MULTIPLE SCLEROSIS
     Dosage: 05 MG, QD
     Route: 048
     Dates: start: 20200213, end: 20200213

REACTIONS (3)
  - Electrocardiogram abnormal [Unknown]
  - Blood pressure abnormal [Unknown]
  - Heart rate decreased [Unknown]
